FAERS Safety Report 8599405-7 (Version None)
Quarter: 2012Q3

REPORT INFORMATION
  Report Type: 
  Country: None (occurrence: None)
  Receive Date: 20120808
  Receipt Date: 20120808
  Transmission Date: 20120928
  Serious: Yes (Hospitalization)
  Sender: FDA-Public Use
  Company Number: None

PATIENT
  Age: 14 Year
  Sex: Male
  Weight: 77.1115 kg

DRUGS (5)
  1. ATIVAN [Concomitant]
  2. ABILIFY [Concomitant]
  3. PREDNISONE [Suspect]
     Indication: EXPOSURE TO TOXIC AGENT
     Dosage: 60 MG DAILY PO
     Route: 048
     Dates: start: 20120707, end: 20120722
  4. BENADRYL [Concomitant]
  5. RISPERIDONE [Concomitant]

REACTIONS (6)
  - DELUSION [None]
  - CATATONIA [None]
  - DEPRESSION [None]
  - EMOTIONAL DISORDER [None]
  - SUICIDAL BEHAVIOUR [None]
  - ANXIETY [None]
